FAERS Safety Report 18781644 (Version 1)
Quarter: 2021Q1

REPORT INFORMATION
  Report Type: Report from Study
  Country: US (occurrence: US)
  Receive Date: 20210125
  Receipt Date: 20210125
  Transmission Date: 20210419
  Serious: Yes (Other)
  Sender: FDA-Public Use
  Company Number: US-SUNOVION-2021SUN000128

PATIENT
  Age: 71 Year
  Sex: Male

DRUGS (4)
  1. KYNMOBI [Suspect]
     Active Substance: APOMORPHINE HYDROCHLORIDE
     Indication: PARKINSON^S DISEASE
     Dosage: 20 MG
     Route: 060
  2. KYNMOBI [Suspect]
     Active Substance: APOMORPHINE HYDROCHLORIDE
     Dosage: 15 MG
     Route: 060
     Dates: start: 20210115, end: 20210115
  3. KYNMOBI [Suspect]
     Active Substance: APOMORPHINE HYDROCHLORIDE
     Dosage: 10 MG
     Route: 060
     Dates: start: 20210113, end: 20210113
  4. SINEMET [Concomitant]
     Active Substance: CARBIDOPA\LEVODOPA
     Dosage: UNK

REACTIONS (5)
  - Dizziness postural [Recovered/Resolved]
  - Dyspnoea [Recovered/Resolved]
  - Respiratory rate increased [Recovered/Resolved]
  - Illness [Unknown]
  - Dystonia [Recovered/Resolved]

NARRATIVE: CASE EVENT DATE: 20210115
